FAERS Safety Report 6148243-3 (Version None)
Quarter: 2009Q2

REPORT INFORMATION
  Report Type: 
  Country: None (occurrence: None)
  Receive Date: 20090408
  Receipt Date: 20090327
  Transmission Date: 20091009
  Serious: Yes (Other)
  Sender: FDA-Public Use
  Company Number: US-PFIZER INC-2009178825

PATIENT
  Sex: Female

DRUGS (2)
  1. GEODON [Suspect]
     Dosage: 80 MG, UNK
     Dates: start: 20090204
  2. ZOLOFT [Concomitant]
     Dosage: 50 MG, UNK

REACTIONS (9)
  - ABASIA [None]
  - BALANCE DISORDER [None]
  - BLOOD CREATINE PHOSPHOKINASE [None]
  - BLOOD CREATINE PHOSPHOKINASE INCREASED [None]
  - CONVULSION [None]
  - HYPERHIDROSIS [None]
  - NEUROLEPTIC MALIGNANT SYNDROME [None]
  - PYREXIA [None]
  - TREMOR [None]
